FAERS Safety Report 21397635 (Version 1)
Quarter: 2022Q3

REPORT INFORMATION
  Report Type: Spontaneous
  Country: US (occurrence: None)
  Receive Date: 20220929
  Receipt Date: 20220929
  Transmission Date: 20221027
  Serious: Yes (Death)
  Sender: FDA-Public Use
  Company Number: None

PATIENT
  Age: 78 Year
  Sex: Female

DRUGS (17)
  1. BIKTARVY [Suspect]
     Active Substance: BICTEGRAVIR SODIUM\EMTRICITABINE\TENOFOVIR ALAFENAMIDE FUMARATE
     Indication: HIV infection
     Dosage: OTHER QUANTITY : 50/200/25 MG;?FREQUENCY : DAILY;?
     Route: 048
     Dates: start: 20211012
  2. PIFELTRO [Suspect]
     Active Substance: DORAVIRINE
     Indication: HIV infection
     Dosage: FREQUENCY : DAILY;?
     Route: 048
     Dates: start: 20220714
  3. ZOFRAN [Concomitant]
     Active Substance: ONDANSETRON HYDROCHLORIDE
  4. TRAMADOL [Concomitant]
     Active Substance: TRAMADOL
  5. MEGESTROL [Concomitant]
     Active Substance: MEGESTROL
  6. KRISTALOSE [Concomitant]
     Active Substance: LACTULOSE
  7. IRON [Concomitant]
     Active Substance: IRON
  8. FUROSEMIDE [Suspect]
     Active Substance: FUROSEMIDE
  9. ASPIRIN [Concomitant]
     Active Substance: ASPIRIN
  10. CARVEDILOL [Concomitant]
     Active Substance: CARVEDILOL
  11. ATORVASTATIN [Concomitant]
     Active Substance: ATORVASTATIN
  12. DOCUSATE [Concomitant]
     Active Substance: DOCUSATE
  13. OMEPRAZOLE [Concomitant]
     Active Substance: OMEPRAZOLE
  14. LISINOPRIL [Concomitant]
     Active Substance: LISINOPRIL
  15. AMLODIPINE [Concomitant]
     Active Substance: AMLODIPINE BESYLATE
  16. HYDRALAZINE [Concomitant]
     Active Substance: HYDRALAZINE HYDROCHLORIDE
  17. HUMALOG [Concomitant]
     Active Substance: INSULIN LISPRO

REACTIONS (1)
  - Death [None]

NARRATIVE: CASE EVENT DATE: 20220101
